FAERS Safety Report 9812534 (Version 2)
Quarter: 2016Q3

REPORT INFORMATION
  Report Type: Spontaneous
  Country: CA (occurrence: CA)
  Receive Date: 20140113
  Receipt Date: 20160714
  Transmission Date: 20161109
  Serious: Yes (Other)
  Sender: FDA-Public Use
  Company Number: CA-BRISTOL-MYERS SQUIBB COMPANY-19981828

PATIENT
  Age: 42 Year
  Sex: Female

DRUGS (4)
  1. ACTIVATED CHARCOAL [Interacting]
     Active Substance: ACTIVATED CHARCOAL
     Indication: GASTROINTESTINAL DISORDER
     Route: 065
  2. TENOFOVIR DF + EMTRICITABINE [Concomitant]
     Active Substance: EMTRICITABINE\TENOFOVIR DISOPROXIL FUMARATE
     Indication: PRODUCT USED FOR UNKNOWN INDICATION
     Dosage: UNK
     Route: 065
     Dates: start: 200909
  3. RITONAVIR. [Interacting]
     Active Substance: RITONAVIR
     Indication: ANTIRETROVIRAL THERAPY
     Dosage: 100 MG, QD
     Route: 065
  4. ATAZANAVIR SULFATE [Suspect]
     Active Substance: ATAZANAVIR SULFATE
     Indication: ANTIRETROVIRAL THERAPY
     Dosage: 300 MG, UNK
     Route: 065

REACTIONS (4)
  - Virologic failure [Recovered/Resolved]
  - Drug resistance [Unknown]
  - Drug interaction [Unknown]
  - Drug level below therapeutic [Unknown]
